FAERS Safety Report 13397236 (Version 11)
Quarter: 2021Q3

REPORT INFORMATION
  Report Type: Spontaneous
  Country: US (occurrence: US)
  Receive Date: 20170403
  Receipt Date: 20210929
  Transmission Date: 20211014
  Serious: Yes (Other)
  Sender: FDA-Public Use
  Company Number: US-INCYTE CORPORATION-2017IN002235

PATIENT

DRUGS (24)
  1. GABAPENTIN. [Concomitant]
     Active Substance: GABAPENTIN
     Indication: PRODUCT USED FOR UNKNOWN INDICATION
     Route: 065
  2. JAKAFI [Suspect]
     Active Substance: RUXOLITINIB
     Dosage: 10MG QAM AND 5 MG QPM
     Route: 048
  3. VITAMIN D                          /00107901/ [Concomitant]
     Active Substance: ERGOCALCIFEROL
     Indication: PRODUCT USED FOR UNKNOWN INDICATION
     Dosage: UNK
     Route: 065
  4. AMITRIPTYLINE [Concomitant]
     Active Substance: AMITRIPTYLINE
     Indication: PRODUCT USED FOR UNKNOWN INDICATION
     Dosage: UNK
     Route: 065
  5. REGLAN [Concomitant]
     Active Substance: METOCLOPRAMIDE HYDROCHLORIDE
     Indication: PRODUCT USED FOR UNKNOWN INDICATION
     Dosage: UNK
     Route: 065
  6. JAKAFI [Suspect]
     Active Substance: RUXOLITINIB
     Dosage: 5 MILLIGRAM DAILY, BID MONDAY?FRIDAY
     Route: 048
     Dates: start: 20150113
  7. AMBIEN [Concomitant]
     Active Substance: ZOLPIDEM TARTRATE
     Indication: PRODUCT USED FOR UNKNOWN INDICATION
     Dosage: UNK
     Route: 065
  8. ZETIA [Concomitant]
     Active Substance: EZETIMIBE
     Indication: PRODUCT USED FOR UNKNOWN INDICATION
     Dosage: UNK
     Route: 065
  9. TRAZODONE [Concomitant]
     Active Substance: TRAZODONE HYDROCHLORIDE
     Indication: PRODUCT USED FOR UNKNOWN INDICATION
     Route: 065
  10. OMEPRAZOLE. [Concomitant]
     Active Substance: OMEPRAZOLE
     Indication: PRODUCT USED FOR UNKNOWN INDICATION
     Dosage: UNK
     Route: 065
  11. PLAVIX [Concomitant]
     Active Substance: CLOPIDOGREL BISULFATE
     Indication: PRODUCT USED FOR UNKNOWN INDICATION
     Route: 065
  12. CITALOPRAM [Concomitant]
     Active Substance: CITALOPRAM HYDROBROMIDE
     Indication: PRODUCT USED FOR UNKNOWN INDICATION
     Route: 065
  13. JAKAFI [Suspect]
     Active Substance: RUXOLITINIB
     Indication: MYELOFIBROSIS
     Dosage: 10 MG (TWO 5 MG TABLETS) QAM AND 5 MG QPM
     Route: 048
     Dates: start: 20150113
  14. JAKAFI [Suspect]
     Active Substance: RUXOLITINIB
     Dosage: 5 MILLIGRAM, BID
     Route: 048
     Dates: start: 20150113
  15. PROTONIX                           /00661201/ [Concomitant]
     Active Substance: OMEPRAZOLE
     Indication: PRODUCT USED FOR UNKNOWN INDICATION
     Route: 065
  16. ZOLPIDEM [Concomitant]
     Active Substance: ZOLPIDEM TARTRATE
     Indication: PRODUCT USED FOR UNKNOWN INDICATION
     Dosage: UNK
     Route: 065
  17. LEXAPRO [Concomitant]
     Active Substance: ESCITALOPRAM OXALATE
     Indication: PRODUCT USED FOR UNKNOWN INDICATION
     Dosage: UNK
     Route: 065
  18. LISINOPRIL. [Concomitant]
     Active Substance: LISINOPRIL
     Indication: PRODUCT USED FOR UNKNOWN INDICATION
     Route: 065
  19. JAKAFI [Suspect]
     Active Substance: RUXOLITINIB
     Indication: POLYCYTHAEMIA VERA
     Dosage: 10MG MG QAM AND 5 MG QPM M?F AND 5 MG BID ON SATURDAY AND SUNDAY
     Route: 048
  20. JAKAFI [Suspect]
     Active Substance: RUXOLITINIB
     Dosage: 5 MILLIGRAM, BID
     Route: 048
  21. METOPROLOL. [Concomitant]
     Active Substance: METOPROLOL
     Indication: PRODUCT USED FOR UNKNOWN INDICATION
  22. ALPRAZOLAM. [Concomitant]
     Active Substance: ALPRAZOLAM
     Indication: PRODUCT USED FOR UNKNOWN INDICATION
     Route: 065
  23. HYDROCODONE BITARTRATE AND ACETAMINOPHEN [Concomitant]
     Active Substance: ACETAMINOPHEN\HYDROCODONE BITARTRATE
     Indication: PRODUCT USED FOR UNKNOWN INDICATION
     Route: 065
  24. BUSPIRONE [Concomitant]
     Active Substance: BUSPIRONE HYDROCHLORIDE
     Indication: PRODUCT USED FOR UNKNOWN INDICATION

REACTIONS (19)
  - Scratch [Unknown]
  - Nausea [Unknown]
  - Haematocrit increased [Unknown]
  - Aquagenic pruritus [Unknown]
  - Pruritus [Not Recovered/Not Resolved]
  - Wrong technique in product usage process [Unknown]
  - Blood test abnormal [Unknown]
  - Fatigue [Unknown]
  - Blood pressure increased [Unknown]
  - White blood cell count increased [Unknown]
  - Dry mouth [Unknown]
  - Product dispensing error [Unknown]
  - Abdominal pain upper [Unknown]
  - Contusion [Unknown]
  - Chest discomfort [Unknown]
  - Chest pain [Unknown]
  - Angular cheilitis [Unknown]
  - Skin discolouration [Recovering/Resolving]
  - Gastric disorder [Unknown]

NARRATIVE: CASE EVENT DATE: 20170330
